FAERS Safety Report 4612911-2 (Version None)
Quarter: 2005Q1

REPORT INFORMATION
  Report Type: 
  Country: None (occurrence: None)
  Receive Date: 20050318
  Receipt Date: 20050308
  Transmission Date: 20050727
  Serious: Yes (Other)
  Sender: FDA-Public Use
  Company Number: NL-GLAXOSMITHKLINE-B0374849A

PATIENT
  Age: 44 Year
  Sex: Female

DRUGS (3)
  1. SUMATRIPTAN SUCCINATE [Suspect]
     Indication: DRUG USE FOR UNKNOWN INDICATION
     Route: 065
     Dates: start: 20010101
  2. EFFEXOR [Concomitant]
  3. ALPRAZOLAM [Concomitant]
     Dosage: .5MG PER DAY

REACTIONS (1)
  - EYE HAEMORRHAGE [None]
